FAERS Safety Report 6086261-4 (Version None)
Quarter: 2009Q1

REPORT INFORMATION
  Report Type: 
  Country: None (occurrence: None)
  Receive Date: 20090220
  Receipt Date: 20080714
  Transmission Date: 20090719
  Serious: No
  Sender: FDA-Public Use
  Company Number: US-ASTRAZENECA-2008UW01134

PATIENT
  Age: 54 Year
  Sex: Female
  Weight: 61.2 kg

DRUGS (5)
  1. PLENDIL [Suspect]
     Indication: HYPERTENSION
     Route: 048
     Dates: start: 20060101
  2. UNSPECIFIED [Suspect]
  3. LISINOPRIL [Concomitant]
     Route: 048
  4. VITAMINS [Concomitant]
  5. CALCIUM [Concomitant]

REACTIONS (7)
  - BACK PAIN [None]
  - CONTUSION [None]
  - HEART RATE INCREASED [None]
  - JOINT SWELLING [None]
  - MEDICATION ERROR [None]
  - PAIN IN EXTREMITY [None]
  - SINUSITIS [None]
